FAERS Safety Report 14963359 (Version 2)
Quarter: 2018Q2

REPORT INFORMATION
  Report Type: Report from Study
  Country: None (occurrence: CA)
  Receive Date: 20180601
  Receipt Date: 20180614
  Transmission Date: 20180711
  Serious: Yes (Death)
  Sender: FDA-Public Use
  Company Number: CA-ABBVIE-18K-028-2374584-00

PATIENT
  Age: 67 Year
  Sex: Female

DRUGS (2)
  1. DUODOPA [Suspect]
     Active Substance: CARBIDOPA\LEVODOPA
     Indication: PARKINSON^S DISEASE
     Dosage: DOSING MORNING BOLUS: 11 ML?CONTINUOUS DOSE RATE: 5.4 ML/H?EXTRA DOSE: 1 ML
     Route: 050
     Dates: start: 20161128, end: 20180529
  2. SINEMET [Concomitant]
     Active Substance: CARBIDOPA\LEVODOPA
     Indication: PARKINSON^S DISEASE
     Dates: end: 20180529

REACTIONS (1)
  - Death [Fatal]

NARRATIVE: CASE EVENT DATE: 20180529
